FAERS Safety Report 5162789-6 (Version None)
Quarter: 2006Q4

REPORT INFORMATION
  Report Type: 
  Country: None (occurrence: None)
  Receive Date: 20061121
  Receipt Date: 20061108
  Transmission Date: 20070319
  Serious: Yes (Death, Hospitalization)
  Sender: FDA-Public Use
  Company Number: US-2005-026688

PATIENT
  Age: 42 Year
  Sex: Female

DRUGS (6)
  1. BETASERON [Suspect]
     Indication: MULTIPLE SCLEROSIS
     Dosage: UNK, EVERY 2D, SUBCUTANEOUS
     Route: 058
     Dates: start: 20000621, end: 20040101
  2. ZYRTEC [Concomitant]
  3. BACLOFEN [Concomitant]
  4. IBUPROFEN [Concomitant]
  5. VALIUM [Concomitant]
  6. COLACE (DOCUSATE SODIUM) [Concomitant]

REACTIONS (1)
  - CONVULSION [None]
